FAERS Safety Report 16098513 (Version 2)
Quarter: 2019Q2

REPORT INFORMATION
  Report Type: Report from Study
  Country: GB (occurrence: GB)
  Receive Date: 20190321
  Receipt Date: 20190406
  Transmission Date: 20190711
  Serious: Yes (Death)
  Sender: FDA-Public Use
  Company Number: GB-CELLTRION INC.-2019GB019357

PATIENT

DRUGS (7)
  1. COTRIMOXAZOLE [Concomitant]
     Active Substance: SULFAMETHOXAZOLE\TRIMETHOPRIM
     Dosage: 480MG BD M,W,F
  2. ALLOPURINOL. [Concomitant]
     Active Substance: ALLOPURINOL
     Dosage: 300MG OD,
  3. BUSCOPAN [Concomitant]
     Active Substance: BUTYLSCOPOLAMINE BROMIDE
     Dosage: 10 MG BD
  4. RANITIDINE. [Concomitant]
     Active Substance: RANITIDINE
     Dosage: 150MG BD
  5. SENNA ALATA [Concomitant]
     Dosage: 7.5MG OD
  6. ORAMORPH [MORPHINE SULFATE] [Concomitant]
     Dosage: 10 MG, PRN
  7. TRUXIMA [Suspect]
     Active Substance: RITUXIMAB-ABBS
     Indication: DIFFUSE LARGE B-CELL LYMPHOMA
     Dosage: 650 MG, EVERY 21 DAYS, ONLY 3 CYCLES DUE TO PROGRESSION
     Route: 042
     Dates: start: 20180105, end: 20180216

REACTIONS (1)
  - Central nervous system lymphoma [Fatal]

NARRATIVE: CASE EVENT DATE: 20180308
